FAERS Safety Report 7971030-8 (Version None)
Quarter: 2011Q4

REPORT INFORMATION
  Report Type: 
  Country: None (occurrence: None)
  Receive Date: 20111212
  Receipt Date: 20111212
  Transmission Date: 20120403
  Serious: Yes (Life-Threatening, Hospitalization)
  Sender: FDA-Public Use
  Company Number: None

PATIENT
  Age: 83 Year
  Sex: Female
  Weight: 48.987 kg

DRUGS (1)
  1. PRADAXA [Suspect]
     Indication: ATRIAL FIBRILLATION
     Dosage: 75 MG TWICE A DAY
     Route: 048
     Dates: start: 20101230, end: 20110325

REACTIONS (3)
  - DYSPNOEA [None]
  - INJURY [None]
  - GASTROINTESTINAL HAEMORRHAGE [None]
